FAERS Safety Report 7085724-2 (Version None)
Quarter: 2010Q4

REPORT INFORMATION
  Report Type: 
  Country: None (occurrence: None)
  Receive Date: 20101027
  Receipt Date: 20101021
  Transmission Date: 20110411
  Serious: Yes (Other)
  Sender: FDA-Public Use
  Company Number: 10252010-MH-B

PATIENT
  Age: 82 Year
  Sex: Female

DRUGS (3)
  1. HURRICAINE  (BENZOCAINE) [Suspect]
     Indication: ENDOSCOPY UPPER GASTROINTESTINAL TRACT
     Dosage: 1 SPRAY
     Dates: start: 20100423
  2. HYDROCHLOROTHIAZIDE [Concomitant]
  3. HYDRALAZYNE [Concomitant]

REACTIONS (1)
  - HEART RATE DECREASED [None]
